FAERS Safety Report 5598126-2 (Version None)
Quarter: 2008Q1

REPORT INFORMATION
  Report Type: 
  Country: None (occurrence: None)
  Receive Date: 20080122
  Receipt Date: 20080111
  Transmission Date: 20080703
  Serious: Yes (Other)
  Sender: FDA-Public Use
  Company Number: US-JNJFOC-20080104938

PATIENT
  Sex: Male
  Weight: 130.64 kg

DRUGS (5)
  1. REMICADE [Suspect]
     Route: 042
  2. REMICADE [Suspect]
     Indication: CROHN'S DISEASE
     Route: 042
  3. 5-ASA [Concomitant]
  4. 6MP [Concomitant]
  5. PREDNISONE [Concomitant]

REACTIONS (3)
  - ANXIETY [None]
  - DRY SKIN [None]
  - VISUAL DISTURBANCE [None]
